FAERS Safety Report 9517921 (Version 1)
Quarter: 2013Q3

REPORT INFORMATION
  Report Type: Spontaneous
  Country: US (occurrence: None)
  Receive Date: 20130910
  Receipt Date: 20130910
  Transmission Date: 20140515
  Serious: Yes (Hospitalization, Disabling)
  Sender: FDA-Public Use
  Company Number: None

PATIENT
  Age: 42 Year
  Sex: Female
  Weight: 70.31 kg

DRUGS (1)
  1. SYNTHROID [Suspect]
     Indication: BASEDOW^S DISEASE
     Route: 048

REACTIONS (3)
  - Blindness [None]
  - Hypoglycaemia [None]
  - Diabetes mellitus [None]
